FAERS Safety Report 24837716 (Version 1)
Quarter: 2025Q1

REPORT INFORMATION
  Report Type: Spontaneous
  Country: US (occurrence: None)
  Receive Date: 20250112
  Receipt Date: 20250112
  Transmission Date: 20250408
  Serious: Yes (Hospitalization)
  Sender: FDA-CTU
  Company Number: None

PATIENT
  Age: 59 Year
  Sex: Female
  Weight: 90.5 kg

DRUGS (1)
  1. SEMAGLUTIDE [Suspect]
     Active Substance: SEMAGLUTIDE
     Indication: Type 2 diabetes mellitus
     Route: 058
     Dates: start: 20241219, end: 20241220

REACTIONS (7)
  - Vomiting [None]
  - Diarrhoea [None]
  - Abdominal pain [None]
  - Hypophagia [None]
  - Colitis [None]
  - Diverticulum intestinal [None]
  - Leukocytosis [None]

NARRATIVE: CASE EVENT DATE: 20241226
